FAERS Safety Report 15601957 (Version 2)
Quarter: 2018Q4

REPORT INFORMATION
  Report Type: Spontaneous
  Country: US (occurrence: US)
  Receive Date: 20181109
  Receipt Date: 20181205
  Transmission Date: 20190205
  Serious: No
  Sender: FDA-Public Use
  Company Number: US-GLAXOSMITHKLINE-US2018198542

PATIENT
  Age: 72 Year
  Sex: Female

DRUGS (1)
  1. ABREVA [Suspect]
     Active Substance: DOCOSANOL
     Indication: ERYTHEMA
     Dosage: UNK
     Dates: start: 20181029, end: 20181030

REACTIONS (8)
  - Lip erythema [Unknown]
  - Chemical burn [Unknown]
  - Condition aggravated [Unknown]
  - Product use in unapproved indication [Unknown]
  - Rash [Unknown]
  - Paraesthesia oral [Unknown]
  - Accidental exposure to product [Unknown]
  - Oral discomfort [Unknown]
